FAERS Safety Report 19503779 (Version 1)
Quarter: 2021Q3

REPORT INFORMATION
  Report Type: Spontaneous
  Country: FR (occurrence: FR)
  Receive Date: 20210707
  Receipt Date: 20210707
  Transmission Date: 20211014
  Serious: Yes (Other)
  Sender: FDA-Public Use
  Company Number: FR-BAYER-2021-169092

PATIENT
  Age: 88 Year
  Sex: Female

DRUGS (2)
  1. CIPROFLOXACIN. [Suspect]
     Active Substance: CIPROFLOXACIN
     Indication: URINARY TRACT INFECTION
     Dosage: FROM OCTOBER 5TH TO 15TH
     Route: 048
  2. METHOTREXATE. [Interacting]
     Active Substance: METHOTREXATE
     Indication: RHEUMATOID ARTHRITIS
     Route: 048
     Dates: start: 2013

REACTIONS (7)
  - Haematoma [Unknown]
  - Hepatotoxicity [Unknown]
  - Pancytopenia [Recovered/Resolved]
  - Haematotoxicity [Recovered/Resolved]
  - Labelled drug-drug interaction medication error [Unknown]
  - Lung disorder [Unknown]
  - Lower respiratory tract congestion [Unknown]
